FAERS Safety Report 9966146 (Version 2)
Quarter: 2014Q1

REPORT INFORMATION
  Report Type: Report from Study
  Country: US (occurrence: US)
  Receive Date: 20140305
  Receipt Date: 20140305
  Transmission Date: 20141002
  Serious: No
  Sender: FDA-Public Use
  Company Number: US-ABBVIE-13P-163-1100944-00

PATIENT
  Age: 49 Year
  Sex: Female

DRUGS (14)
  1. HUMIRA [Suspect]
     Indication: CROHN^S DISEASE
     Dates: start: 20130530
  2. PENTASA [Concomitant]
     Indication: CROHN^S DISEASE
  3. GABAPENTIN [Concomitant]
     Indication: PRODUCT USED FOR UNKNOWN INDICATION
  4. AZATHIOPRINE [Concomitant]
     Indication: PRODUCT USED FOR UNKNOWN INDICATION
     Dosage: 3.5 TABLETS A DAY
  5. IMODIUM [Concomitant]
     Indication: DIARRHOEA
     Dosage: 6 TABLETS DAILY
     Route: 048
  6. DICYCLOMINE [Concomitant]
     Indication: CROHN^S DISEASE
  7. PANTOPRAZOLE [Concomitant]
     Indication: GASTROOESOPHAGEAL REFLUX DISEASE
     Dosage: 40MG DAILY
  8. LISINOPRIL [Concomitant]
     Indication: HYPERTENSION
     Route: 048
  9. BUPROPION HCL [Concomitant]
     Indication: DEPRESSION
     Dosage: 2 TABLETS IN AM AND ONE TABLET IN PM
  10. FISH OIL [Concomitant]
     Indication: HYPERTRIGLYCERIDAEMIA
  11. FISH OIL [Concomitant]
     Indication: HYPERCHOLESTEROLAEMIA
  12. HALOPERIDOL [Concomitant]
     Indication: HALLUCINATION
     Route: 048
  13. CYMBALTA [Concomitant]
     Indication: NEUROPATHY PERIPHERAL
     Route: 048
  14. CHOLESTYRAMINE [Concomitant]
     Indication: DIARRHOEA
     Dosage: 2 SCOOPS 3 TIMES DAILY

REACTIONS (6)
  - Oropharyngeal pain [Not Recovered/Not Resolved]
  - Cough [Not Recovered/Not Resolved]
  - Headache [Not Recovered/Not Resolved]
  - Diarrhoea [Not Recovered/Not Resolved]
  - Injection site pain [Not Recovered/Not Resolved]
  - Drug ineffective [Not Recovered/Not Resolved]
